FAERS Safety Report 8033523-7 (Version None)
Quarter: 2012Q1

REPORT INFORMATION
  Report Type: 
  Country: None (occurrence: None)
  Receive Date: 20120110
  Receipt Date: 20120106
  Transmission Date: 20120608
  Serious: Yes (Hospitalization)
  Sender: FDA-Public Use
  Company Number: GB-JNJFOC-20120101921

PATIENT
  Sex: Male

DRUGS (1)
  1. SUDAFED DECONGESTANT [Suspect]
     Indication: NASAL CONGESTION
     Dosage: ^IN TOTAL APPROXIMATELY SIX TO EIGHT TABLETS^ FOR TWO DAYS
     Route: 048

REACTIONS (2)
  - LOSS OF CONSCIOUSNESS [None]
  - URINARY RETENTION [None]
